FAERS Safety Report 16285865 (Version 1)
Quarter: 2019Q2

REPORT INFORMATION
  Report Type: Spontaneous
  Country: US (occurrence: US)
  Receive Date: 20190508
  Receipt Date: 20190508
  Transmission Date: 20190711
  Serious: No
  Sender: FDA-Public Use
  Company Number: US-MYLANLABS-2019M1040069

PATIENT
  Sex: Male
  Weight: 90 kg

DRUGS (1)
  1. LIDOCAINE PATCH [Suspect]
     Active Substance: LIDOCAINE
     Indication: BACK PAIN
     Dosage: UNK
     Route: 003
     Dates: start: 20190405

REACTIONS (3)
  - Product quality issue [Recovered/Resolved]
  - Product use in unapproved indication [Unknown]
  - Product adhesion issue [Recovered/Resolved]
